FAERS Safety Report 15286306 (Version 4)
Quarter: 2020Q2

REPORT INFORMATION
  Report Type: Spontaneous
  Country: US (occurrence: US)
  Receive Date: 20180816
  Receipt Date: 20200611
  Transmission Date: 20200713
  Serious: Yes (Hospitalization)
  Sender: FDA-Public Use
  Company Number: US-PFIZER INC-2018327904

PATIENT
  Age: 3 Year
  Sex: Female
  Weight: 12.25 kg

DRUGS (5)
  1. GENOTROPIN MQ [Suspect]
     Active Substance: SOMATROPIN
     Indication: CARDIAC DISORDER
     Dosage: 0.5 MG, DAILY (0.5 MG CRT INJECTION NIGHTLY)
  2. GENOTROPIN MQ [Suspect]
     Active Substance: SOMATROPIN
     Indication: HYPOPITUITARISM
     Dosage: 0.4 MG, DAILY
     Dates: start: 2018
  3. GENOTROPIN MQ [Suspect]
     Active Substance: SOMATROPIN
     Indication: CEREBRAL DISORDER
     Dosage: UNK
     Dates: end: 201804
  4. SYNTHROID [Concomitant]
     Active Substance: LEVOTHYROXINE SODIUM
     Indication: THYROID DISORDER
     Dosage: 25 UG, 1X/DAY
     Route: 048
     Dates: start: 2015
  5. GENOTROPIN MQ [Suspect]
     Active Substance: SOMATROPIN
     Dosage: 0.6 MG, DAILY

REACTIONS (6)
  - Staphylococcal infection [Not Recovered/Not Resolved]
  - Product dose omission [Not Recovered/Not Resolved]
  - Fungal infection [Recovering/Resolving]
  - Body height abnormal [Not Recovered/Not Resolved]
  - Impetigo [Unknown]
  - Weight decreased [Unknown]

NARRATIVE: CASE EVENT DATE: 20180312
